FAERS Safety Report 8396267-8 (Version None)
Quarter: 2012Q2

REPORT INFORMATION
  Report Type: 
  Country: None (occurrence: None)
  Receive Date: 20120530
  Receipt Date: 20120517
  Transmission Date: 20120825
  Serious: Yes (Death)
  Sender: FDA-Public Use
  Company Number: JP-ROCHE-1032520

PATIENT
  Age: 50 Year
  Sex: Female

DRUGS (9)
  1. FLUOROURACIL [Concomitant]
     Dosage: DOSAGE IS UNCERTAIN.
     Route: 041
  2. OXALIPLATIN [Concomitant]
     Indication: RECTAL CANCER RECURRENT
     Dosage: DOSAGE IS UNCERTAIN.
     Route: 041
  3. FLUOROURACIL [Concomitant]
     Dosage: DOSAGE IS UNCERTAIN.
     Route: 040
  4. AVASTIN [Suspect]
     Indication: RECTAL CANCER RECURRENT
     Dosage: DOSAGE IS UNCERTAIN.
     Route: 041
  5. IRINOTECAN HYDROCHLORIDE [Concomitant]
     Indication: RECTAL CANCER RECURRENT
     Dosage: DOSAGE IS UNCERTAIN.
     Route: 041
  6. FLUOROURACIL [Concomitant]
     Indication: RECTAL CANCER RECURRENT
     Dosage: DOSAGE IS UNCERTAIN.
     Route: 040
  7. FLUOROURACIL [Concomitant]
     Dosage: DOSAGE IS UNCERTAIN.
     Route: 041
  8. LEVOLEUCOVORIN CALCIUM [Concomitant]
     Dosage: DOSAGE IS UNCERTAIN.
     Route: 041
  9. LEVOLEUCOVORIN CALCIUM [Concomitant]
     Indication: RECTAL CANCER RECURRENT
     Dosage: DOSAGE IS UNCERTAIN.
     Route: 041

REACTIONS (2)
  - DIARRHOEA [None]
  - DISEASE PROGRESSION [None]
